FAERS Safety Report 24609326 (Version 1)
Quarter: 2024Q4

REPORT INFORMATION
  Report Type: Spontaneous
  Country: FR (occurrence: FR)
  Receive Date: 20241112
  Receipt Date: 20241112
  Transmission Date: 20250115
  Serious: Yes (Hospitalization, Other)
  Sender: ANI
  Company Number: FR-ANIPHARMA-2024-FR-000191

PATIENT
  Age: 86 Year
  Sex: Female
  Weight: 58.3 kg

DRUGS (7)
  1. CANDESARTAN CILEXETIL [Suspect]
     Active Substance: CANDESARTAN CILEXETIL
     Indication: Product used for unknown indication
     Route: 048
  2. PREDNISOLONE [Suspect]
     Active Substance: PREDNISOLONE
     Dosage: 30 MILLIGRAM
     Route: 048
     Dates: start: 20240820
  3. KARDEGIC [Concomitant]
     Active Substance: ASPIRIN DL-LYSINE
  4. TOVIAZ [Concomitant]
     Active Substance: FESOTERODINE FUMARATE
  5. Meteospasmyl [Concomitant]
  6. OXAZEPAM [Concomitant]
     Active Substance: OXAZEPAM
  7. RITUXIMAB [Suspect]
     Active Substance: RITUXIMAB
     Dosage: 1 GRAM
     Route: 042
     Dates: start: 202301, end: 20240906

REACTIONS (2)
  - Pneumocystis jirovecii pneumonia [Recovering/Resolving]
  - Respiratory disorder [Unknown]

NARRATIVE: CASE EVENT DATE: 20240901
